FAERS Safety Report 15182904 (Version 1)
Quarter: 2018Q3

REPORT INFORMATION
  Report Type: Spontaneous
  Country: US (occurrence: US)
  Receive Date: 20180723
  Receipt Date: 20180723
  Transmission Date: 20181010
  Serious: Yes (Hospitalization, Disabling)
  Sender: FDA-Public Use
  Company Number: US-JNJFOC-20180723152

PATIENT
  Age: 60 Year
  Sex: Female

DRUGS (1)
  1. INVOKANA [Suspect]
     Active Substance: CANAGLIFLOZIN
     Indication: TYPE 2 DIABETES MELLITUS
     Route: 048
     Dates: end: 20160414

REACTIONS (6)
  - Diabetic ulcer [Unknown]
  - Postoperative wound infection [Unknown]
  - Cellulitis [Unknown]
  - Osteomyelitis [Unknown]
  - Leg amputation [Unknown]
  - Bone operation [Unknown]

NARRATIVE: CASE EVENT DATE: 2016
